FAERS Safety Report 13958582 (Version 2)
Quarter: 2017Q4

REPORT INFORMATION
  Report Type: Spontaneous
  Country: US (occurrence: US)
  Receive Date: 20170912
  Receipt Date: 20171109
  Transmission Date: 20180320
  Serious: No
  Sender: FDA-Public Use
  Company Number: US-PFIZER INC-2017392559

PATIENT
  Age: 56 Year
  Sex: Female

DRUGS (1)
  1. XELJANZ [Suspect]
     Active Substance: TOFACITINIB CITRATE
     Dosage: 5 MG, UNK
     Route: 048
     Dates: start: 201706

REACTIONS (12)
  - Joint range of motion decreased [Unknown]
  - Nausea [Unknown]
  - Skin ulcer [Unknown]
  - Joint swelling [Unknown]
  - Pain in extremity [Unknown]
  - Chills [Unknown]
  - Finger deformity [Unknown]
  - Foot deformity [Unknown]
  - Joint effusion [Unknown]
  - Arthralgia [Unknown]
  - Skin lesion [Unknown]
  - Synovial cyst [Unknown]

NARRATIVE: CASE EVENT DATE: 20171105
